FAERS Safety Report 8170900 (Version 3)
Quarter: 2012Q4

REPORT INFORMATION
  Report Type: 
  Country: US (occurrence: US)
  Receive Date: 20111006
  Receipt Date: 20121025
  Transmission Date: 20130627
  Serious: Yes (Hospitalization, Other)
  Sender: FDA-Public Use
  Company Number: PHEH2011US05341

PATIENT
  Sex: Female

DRUGS (1)
  1. AREDIA [Suspect]
     Indication: BREAST CANCER METASTATIC

REACTIONS (13)
  - Back pain [Unknown]
  - Muscular weakness [Unknown]
  - Metastases to bone [Unknown]
  - Spondylolisthesis [Unknown]
  - Nephrolithiasis [Unknown]
  - Pulmonary mass [Unknown]
  - Atelectasis [Unknown]
  - Metastases to pelvis [Unknown]
  - Splenic lesion [Unknown]
  - Anaemia [Unknown]
  - Thrombocytopenia [Unknown]
  - Cardiac disorder [Unknown]
  - Fractured sacrum [Unknown]
